FAERS Safety Report 18316102 (Version 1)
Quarter: 2020Q3

REPORT INFORMATION
  Report Type: Spontaneous
  Country: DE (occurrence: DE)
  Receive Date: 20200927
  Receipt Date: 20200927
  Transmission Date: 20201103
  Serious: Yes (Hospitalization)
  Sender: FDA-Public Use
  Company Number: DE-TEVA-2020-DE-1830688

PATIENT
  Age: 84 Year
  Sex: Male

DRUGS (8)
  1. PANTOPRAZOL [Suspect]
     Active Substance: PANTOPRAZOLE SODIUM
     Dosage: 40 MILLIGRAM DAILY;  1?0?0?0
     Route: 048
  2. NALOXON/TILIDIN [Suspect]
     Active Substance: NALOXONE HYDROCHLORIDE\TILIDINE HYDROCHLORIDE
     Dosage: 1 DOSAGE FORMS DAILY; 5|10 MG, 1?0?0?0
     Route: 048
  3. TORASEMID [Concomitant]
     Active Substance: TORSEMIDE
     Dosage: 5 MILLIGRAM DAILY;  1?0?0?0
     Route: 048
  4. GABAPENTIN. [Concomitant]
     Active Substance: GABAPENTIN
     Dosage: 900 MILLIGRAM DAILY;  1?1?1?0
     Route: 048
  5. THYRONAJOD 75 HENNING [Concomitant]
     Dosage: .5 DOSAGE FORMS DAILY; 0.15 | 0.073 MG, 0.5?0?0?0
     Route: 048
  6. COLECALCIFEROL (VITAMIN D) [Concomitant]
     Dosage: 1000 IU (INTERNATIONAL UNIT) DAILY; 1?0?0?0
     Route: 048
  7. ACETYLSALICYLSAURE [Suspect]
     Active Substance: ASPIRIN
     Dosage: 100 MILLIGRAM DAILY; 1?0?0?0
     Route: 048
  8. CANDESARTAN. [Concomitant]
     Active Substance: CANDESARTAN
     Dosage: 32 MILLIGRAM DAILY; 1?0?1?0
     Route: 048

REACTIONS (4)
  - Fall [Unknown]
  - Haematoma [Unknown]
  - Wound [Unknown]
  - Fracture [Unknown]

NARRATIVE: CASE EVENT DATE: 202006
